FAERS Safety Report 6359457-1 (Version None)
Quarter: 2009Q3

REPORT INFORMATION
  Report Type: 
  Country: None (occurrence: None)
  Receive Date: 20090917
  Receipt Date: 20090904
  Transmission Date: 20100115
  Serious: Yes (Hospitalization, Other)
  Sender: FDA-Public Use
  Company Number: US-ROCHE-637507

PATIENT
  Sex: Female
  Weight: 74.8 kg

DRUGS (14)
  1. CAPECITABINE [Suspect]
     Indication: OVARIAN CANCER
     Dosage: DOSE: 3 TABLETS, BID
     Route: 048
     Dates: start: 20090422, end: 20090825
  2. HYDROCHLOROTHIAZIDE [Concomitant]
  3. REGLAN [Concomitant]
  4. ZOFRAN [Concomitant]
  5. QUINAPRIL [Concomitant]
     Indication: HYPERTENSION
     Dosage: FREQUENCY:QD
     Route: 048
  6. LEVOTHROID [Concomitant]
     Indication: HYPOTHYROIDISM
     Dosage: FREQUENCY:QD
     Route: 048
  7. METOPROLOL TARTRATE [Concomitant]
  8. PRILOSEC [Concomitant]
     Dosage: FREQUENCY: QD
     Route: 048
  9. CELEBREX [Concomitant]
     Dosage: FREQUENCY: QD
     Route: 048
  10. ASPIRIN [Concomitant]
  11. HYDROCHLOROTHIAZIDE [Concomitant]
     Dosage: FREQUENCY:QD
     Route: 048
  12. LOPRESSOR [Concomitant]
     Dosage: FREQUENCY:QD
  13. VITAMIN B/VITAMIN C [Concomitant]
     Dosage: FREQUENCY:QD
     Route: 048
  14. VITAMIN B-12 [Concomitant]
     Dosage: FREQUENCY: QD
     Route: 048

REACTIONS (5)
  - DRUG INEFFECTIVE [None]
  - HEADACHE [None]
  - MALIGNANT NEOPLASM PROGRESSION [None]
  - PULMONARY EMBOLISM [None]
  - PULMONARY THROMBOSIS [None]
